FAERS Safety Report 19225761 (Version 1)
Quarter: 2021Q2

REPORT INFORMATION
  Report Type: Spontaneous
  Country: US (occurrence: US)
  Receive Date: 20210506
  Receipt Date: 20210506
  Transmission Date: 20210717
  Serious: Yes (Hospitalization, Other)
  Sender: FDA-Public Use
  Company Number: US-AZURITY PHARMACEUTICALS, INC.-2021AZY00042

PATIENT
  Age: 12 Year
  Sex: Female

DRUGS (4)
  1. UNSPECIFIED ANGIOTENSIN?CONVERTING ENZYME INHIBITOR [Suspect]
     Active Substance: UNSPECIFIED INGREDIENT
     Route: 048
  2. AMLODIPINE [Suspect]
     Active Substance: AMLODIPINE BESYLATE
     Dosage: UP TO 900 MG
     Route: 048
  3. UNSPECIFIED SELECTIVE SEROTONIN REUPTAKE INHIBITORS (SSRI) [Suspect]
     Active Substance: UNSPECIFIED INGREDIENT
     Route: 048
  4. UNSPECIFIED NONSTEROIDAL ANTI?INFLAMMATORY DRUG [Suspect]
     Active Substance: UNSPECIFIED INGREDIENT
     Route: 048

REACTIONS (8)
  - Respiratory acidosis [Recovered/Resolved]
  - Acute kidney injury [Recovered/Resolved]
  - Metabolic acidosis [Recovered/Resolved]
  - Intentional overdose [Recovered/Resolved]
  - Generalised tonic-clonic seizure [Unknown]
  - Acute respiratory distress syndrome [Recovered/Resolved]
  - Shock [Recovered/Resolved]
  - Mental status changes [Unknown]
